FAERS Safety Report 4355827-1 (Version None)
Quarter: 2004Q2

REPORT INFORMATION
  Report Type: 
  Country: None (occurrence: None)
  Receive Date: 20040505
  Receipt Date: 20040422
  Transmission Date: 20050107
  Serious: Yes (Death, Hospitalization, Other)
  Sender: FDA-Public Use
  Company Number: 2004027047

PATIENT
  Sex: Male

DRUGS (16)
  1. TIKOSYN [Suspect]
     Indication: ATRIAL FIBRILLATION
     Dosage: 500 MCG (BID)
     Dates: start: 20020506, end: 20020507
  2. DIGOXIN [Concomitant]
  3. MAGNESIUM OXIDE (MAGNESIUM OXIDE) [Concomitant]
  4. FLUTICASONE PROPIONATE [Concomitant]
  5. SALMETEROL (SALMETEROL) [Concomitant]
  6. LOSARTAN (LOSARTAN) [Concomitant]
  7. NITROGLYCERIN [Concomitant]
  8. MAGNESIUM HYDROXIDE (MAGNESIUM HYDROXIDE) [Concomitant]
  9. ACETAMINOPHEN [Concomitant]
  10. SALBUTAMOL (SALBUTAMOL) [Concomitant]
  11. IPRATROPIUM BROMIDE [Concomitant]
  12. ENOXAPARIN SODIUM [Concomitant]
  13. WARFARIN SODIUM [Concomitant]
  14. DILTIAZEM [Concomitant]
  15. FUROSEMIDE [Concomitant]
  16. SPIRONOLACTONE [Concomitant]

REACTIONS (7)
  - BLOOD CREATININE DECREASED [None]
  - BLOOD POTASSIUM INCREASED [None]
  - HYPERHIDROSIS [None]
  - RESPIRATORY ARREST [None]
  - SUDDEN CARDIAC DEATH [None]
  - TORSADE DE POINTES [None]
  - VENTRICULAR FIBRILLATION [None]
